FAERS Safety Report 7207462-5 (Version None)
Quarter: 2011Q1

REPORT INFORMATION
  Report Type: 
  Country: None (occurrence: None)
  Receive Date: 20110103
  Receipt Date: 20101115
  Transmission Date: 20110831
  Serious: Yes (Other)
  Sender: FDA-Public Use
  Company Number: PHHY2010DE79723

PATIENT
  Age: 74 Year
  Sex: Female

DRUGS (1)
  1. FEMARA [Suspect]
     Indication: BREAST CANCER
     Dosage: 1 DF, DAILY
     Route: 048
     Dates: start: 20030101

REACTIONS (1)
  - THYROID NEOPLASM [None]
